FAERS Safety Report 4338625-4 (Version None)
Quarter: 2004Q2

REPORT INFORMATION
  Report Type: 
  Country: None (occurrence: None)
  Receive Date: 20040409
  Receipt Date: 20040331
  Transmission Date: 20050107
  Serious: Yes (Other)
  Sender: FDA-Public Use
  Company Number: K200400483

PATIENT
  Age: 52 Year
  Sex: Male
  Weight: 120.2 kg

DRUGS (10)
  1. LEVOXYL [Suspect]
     Indication: THYROIDECTOMY
     Dosage: SEE IMAGE
     Route: 048
     Dates: start: 20040301, end: 20040301
  2. LEVOXYL [Suspect]
     Indication: THYROIDECTOMY
     Dosage: SEE IMAGE
     Route: 048
     Dates: end: 20040301
  3. LEVOXYL [Suspect]
     Indication: THYROIDECTOMY
     Dosage: SEE IMAGE
     Route: 048
     Dates: start: 20030301
  4. HUMALOG [Concomitant]
  5. LANTUS [Concomitant]
  6. ACTOS [Concomitant]
  7. GEMFIBROZIL [Concomitant]
  8. LIPITOR [Concomitant]
  9. OMEPRAZOLE [Concomitant]
  10. CEPHALEXIN [Concomitant]

REACTIONS (17)
  - ANAPHYLACTIC SHOCK [None]
  - BLOOD GLUCOSE INCREASED [None]
  - BLOOD THYROID STIMULATING HORMONE DECREASED [None]
  - BURNING SENSATION [None]
  - COORDINATION ABNORMAL [None]
  - DEHYDRATION [None]
  - DEPRESSION [None]
  - DIZZINESS [None]
  - FLUSHING [None]
  - HEART RATE INCREASED [None]
  - HYPERTHYROIDISM [None]
  - MENTAL DISORDER [None]
  - PAIN [None]
  - PALPITATIONS [None]
  - PRURITUS [None]
  - SUICIDAL IDEATION [None]
  - THROAT TIGHTNESS [None]
